FAERS Safety Report 5744795-3 (Version None)
Quarter: 2008Q2

REPORT INFORMATION
  Report Type: 
  Country: None (occurrence: None)
  Receive Date: 20080516
  Receipt Date: 20080509
  Transmission Date: 20081010
  Serious: Yes (Other)
  Sender: FDA-Public Use
  Company Number: JPI-P-003295

PATIENT
  Age: 43 Year
  Sex: Female
  Weight: 95.2554 kg

DRUGS (8)
  1. XYREM [Suspect]
     Indication: CATAPLEXY
     Dosage: 4.5 GR, (2.25 GM, 2 IN 1 D), ORAL; 6 GM (3 GM, 2 IN 1 D) ORAL; 4.5 GM (2.25 GM, 2 IN 1 D) ORAL; 7 GM
     Route: 048
     Dates: start: 20080314, end: 20080320
  2. XYREM [Suspect]
     Indication: NARCOLEPSY
     Dosage: 4.5 GR, (2.25 GM, 2 IN 1 D), ORAL; 6 GM (3 GM, 2 IN 1 D) ORAL; 4.5 GM (2.25 GM, 2 IN 1 D) ORAL; 7 GM
     Route: 048
     Dates: start: 20080314, end: 20080320
  3. XYREM [Suspect]
     Indication: CATAPLEXY
     Dosage: 4.5 GR, (2.25 GM, 2 IN 1 D), ORAL; 6 GM (3 GM, 2 IN 1 D) ORAL; 4.5 GM (2.25 GM, 2 IN 1 D) ORAL; 7 GM
     Route: 048
     Dates: start: 20080321, end: 20080325
  4. XYREM [Suspect]
     Indication: NARCOLEPSY
     Dosage: 4.5 GR, (2.25 GM, 2 IN 1 D), ORAL; 6 GM (3 GM, 2 IN 1 D) ORAL; 4.5 GM (2.25 GM, 2 IN 1 D) ORAL; 7 GM
     Route: 048
     Dates: start: 20080321, end: 20080325
  5. XYREM [Suspect]
     Indication: CATAPLEXY
     Dosage: 4.5 GR, (2.25 GM, 2 IN 1 D), ORAL; 6 GM (3 GM, 2 IN 1 D) ORAL; 4.5 GM (2.25 GM, 2 IN 1 D) ORAL; 7 GM
     Route: 048
     Dates: start: 20080326
  6. XYREM [Suspect]
     Indication: NARCOLEPSY
     Dosage: 4.5 GR, (2.25 GM, 2 IN 1 D), ORAL; 6 GM (3 GM, 2 IN 1 D) ORAL; 4.5 GM (2.25 GM, 2 IN 1 D) ORAL; 7 GM
     Route: 048
     Dates: start: 20080326
  7. FLUOXETINE HCL [Concomitant]
  8. METHYLPHENIDATE HCL [Concomitant]

REACTIONS (4)
  - CATAPLEXY [None]
  - CONVULSION [None]
  - DYSPNOEA [None]
  - PARALYSIS [None]
